FAERS Safety Report 23170409 (Version 1)
Quarter: 2023Q4

REPORT INFORMATION
  Report Type: Spontaneous
  Country: US (occurrence: US)
  Receive Date: 20231110
  Receipt Date: 20231110
  Transmission Date: 20240109
  Serious: Yes (Other)
  Sender: FDA-Public Use
  Company Number: US-NEBO-PC012448

PATIENT
  Sex: Female

DRUGS (1)
  1. MONOFERRIC [Suspect]
     Active Substance: FERRIC DERISOMALTOSE
     Indication: Product used for unknown indication
     Route: 050

REACTIONS (6)
  - Syncope [Unknown]
  - Confusional state [Unknown]
  - Hypotension [Unknown]
  - Hyperhidrosis [Unknown]
  - Anal incontinence [Unknown]
  - Maternal exposure during pregnancy [Recovered/Resolved]
